FAERS Safety Report 6837286-X (Version None)
Quarter: 2010Q3

REPORT INFORMATION
  Report Type: 
  Country: None (occurrence: None)
  Receive Date: 20100713
  Receipt Date: 20070509
  Transmission Date: 20110219
  Serious: No
  Sender: FDA-Public Use
  Company Number: US-PFIZER INC-2007038158

PATIENT
  Sex: Female
  Weight: 72.727 kg

DRUGS (8)
  1. CHANTIX [Suspect]
     Indication: SMOKING CESSATION THERAPY
     Dates: start: 20070401
  2. PAXIL [Concomitant]
  3. XANAX [Concomitant]
  4. ALTACE [Concomitant]
  5. TOPROL-XL [Concomitant]
  6. ACETYLSALICYLIC ACID [Concomitant]
     Dosage: 81MG A DAY
  7. VYTORIN [Concomitant]
  8. PLAVIX [Concomitant]

REACTIONS (4)
  - DRUG WITHDRAWAL SYNDROME [None]
  - FATIGUE [None]
  - FEELING ABNORMAL [None]
  - NAUSEA [None]
